FAERS Safety Report 23737985 (Version 2)
Quarter: 2024Q3

REPORT INFORMATION
  Report Type: Spontaneous
  Country: JP (occurrence: JP)
  Receive Date: 20240412
  Receipt Date: 20240828
  Transmission Date: 20241016
  Serious: Yes (Hospitalization)
  Sender: EISAI
  Company Number: JP-Eisai-202212742_LEN-EC_P_1

PATIENT
  Age: 65 Year
  Sex: Female

DRUGS (4)
  1. LENVIMA [Suspect]
     Active Substance: LENVATINIB
     Indication: Endometrial cancer
     Dosage: ALTERNATE-DAY ADMINISTRATION OF 14 MG
     Route: 048
     Dates: start: 20220615, end: 20220627
  2. LENVIMA [Suspect]
     Active Substance: LENVATINIB
     Dosage: ALTERNATE-DAY ADMINISTRATION OF 14 MG
     Route: 048
     Dates: start: 20220713
  3. KEYTRUDA [Concomitant]
     Active Substance: PEMBROLIZUMAB
     Indication: Endometrial cancer
     Route: 042
     Dates: start: 20220615
  4. KEYTRUDA [Concomitant]
     Active Substance: PEMBROLIZUMAB
     Route: 042
     Dates: start: 20220713

REACTIONS (3)
  - Generalised oedema [Recovered/Resolved]
  - Ascites [Recovered/Resolved]
  - Dehydration [Recovered/Resolved]

NARRATIVE: CASE EVENT DATE: 20220627
